FAERS Safety Report 7465190-5 (Version None)
Quarter: 2011Q2

REPORT INFORMATION
  Report Type: 
  Country: None (occurrence: None)
  Receive Date: 20110509
  Receipt Date: 20110425
  Transmission Date: 20111010
  Serious: Yes (Other)
  Sender: FDA-Public Use
  Company Number: CA-PFIZER INC-2011087828

PATIENT
  Age: 85 Year
  Sex: Female

DRUGS (3)
  1. ATORVASTATIN CALCIUM [Suspect]
     Dosage: 20 MG, 1X/DAY
     Route: 048
     Dates: start: 20101115, end: 20110201
  2. LIPITOR [Suspect]
     Dosage: UNK
     Dates: start: 20100310, end: 20101115
  3. SYNTHROID [Concomitant]
     Dosage: 5 UG, UNK
     Dates: start: 20070101

REACTIONS (4)
  - AMNESIA [None]
  - BLOOD CREATINE PHOSPHOKINASE INCREASED [None]
  - TOXICITY TO VARIOUS AGENTS [None]
  - ATAXIA [None]
